FAERS Safety Report 25461958 (Version 1)
Quarter: 2025Q2

REPORT INFORMATION
  Report Type: Spontaneous
  Country: US (occurrence: US)
  Receive Date: 20250620
  Receipt Date: 20250620
  Transmission Date: 20250716
  Serious: No
  Sender: JOHNSON AND JOHNSON
  Company Number: US-JNJFOC-20250623166

PATIENT

DRUGS (2)
  1. REMICADE [Suspect]
     Active Substance: INFLIXIMAB
     Indication: Iridocyclitis
     Dosage: INCLUDED 5 VIALS
     Route: 041
  2. REMICADE [Suspect]
     Active Substance: INFLIXIMAB
     Dosage: INCLUDED 3 VIALS
     Route: 041

REACTIONS (4)
  - Product dose omission issue [Unknown]
  - Product dispensing error [Unknown]
  - Off label use [Unknown]
  - Administration site reaction [Unknown]
